FAERS Safety Report 7298352-0 (Version None)
Quarter: 2011Q1

REPORT INFORMATION
  Report Type: 
  Country: None (occurrence: None)
  Receive Date: 20110217
  Receipt Date: 20110209
  Transmission Date: 20110831
  Serious: Yes (Hospitalization)
  Sender: FDA-Public Use
  Company Number: SE-AMGEN-SWESP2011008432

PATIENT
  Age: 37 Year
  Sex: Male

DRUGS (2)
  1. SERTRALINE HYDROCHLORIDE [Concomitant]
     Dosage: UNK
  2. ENBREL [Suspect]
     Indication: PSORIASIS
     Dosage: 25 MG, UNK
     Dates: start: 20100226, end: 20100618

REACTIONS (2)
  - NEPHROTIC SYNDROME [None]
  - HENOCH-SCHONLEIN PURPURA [None]
